FAERS Safety Report 7379896-X (Version None)
Quarter: 2011Q1

REPORT INFORMATION
  Report Type: 
  Country: None (occurrence: None)
  Receive Date: 20110318
  Receipt Date: 20110310
  Transmission Date: 20110831
  Serious: Yes (Death)
  Sender: FDA-Public Use
  Company Number: 1000018653

PATIENT
  Age: 72 Year
  Sex: Male

DRUGS (9)
  1. AMLODIPINE [Concomitant]
  2. ROFLUMILAST (ROFLUMILAST) (500 MICROGRAM, TABLETS) [Suspect]
     Dosage: 500 MCG (500 MCG,1 IN 1 D),ORAL
     Route: 048
     Dates: start: 20100721, end: 20110106
  3. SIMVASTATIN [Concomitant]
  4. SITAGLIPTIN (SITAGLIPTIN) (SITAGLIPTIN) [Concomitant]
  5. DECORTIN (PREDNISONE) (PREDNISONE) [Concomitant]
  6. ASS STADA (ACETYLSALICYLIC ACID) (ACETYLSALICYLIC ACID) [Concomitant]
  7. THEOPHYLLINE [Concomitant]
  8. SPIRIVA (TIOTROPIUM BROMIDE) (TIOTROPIUM BROMIDE) [Concomitant]
  9. CARVEDILOL [Concomitant]

REACTIONS (5)
  - WEIGHT DECREASED [None]
  - DIZZINESS [None]
  - TACHYCARDIA [None]
  - CEREBROVASCULAR ACCIDENT [None]
  - NAUSEA [None]
